FAERS Safety Report 6659690-5 (Version None)
Quarter: 2010Q1

REPORT INFORMATION
  Report Type: 
  Country: None (occurrence: None)
  Receive Date: 20100330
  Receipt Date: 20100326
  Transmission Date: 20100710
  Serious: Yes (Life-Threatening, Hospitalization)
  Sender: FDA-Public Use
  Company Number: US-GENENTECH-298118

PATIENT
  Sex: Male
  Weight: 112.47 kg

DRUGS (5)
  1. XOLAIR [Suspect]
     Indication: HYPERSENSITIVITY
     Dosage: 375 MG, Q2W
     Route: 058
     Dates: start: 20090414, end: 20100210
  2. XOLAIR [Suspect]
     Indication: ASTHMA
  3. ALLEGRA [Concomitant]
     Indication: DRUG USE FOR UNKNOWN INDICATION
     Dosage: UNK
  4. FLONASE [Concomitant]
     Indication: DRUG USE FOR UNKNOWN INDICATION
     Dosage: 2 PUFF, QD
  5. ADVAIR DISKUS 100/50 [Concomitant]
     Indication: DRUG USE FOR UNKNOWN INDICATION
     Dosage: 1 PUFF, BID

REACTIONS (1)
  - PULMONARY EMBOLISM [None]
